FAERS Safety Report 9814207 (Version 3)
Quarter: 2014Q2

REPORT INFORMATION
  Report Type: Spontaneous
  Country: FR (occurrence: FR)
  Receive Date: 20140113
  Receipt Date: 20140522
  Transmission Date: 20141212
  Serious: Yes (Hospitalization)
  Sender: FDA-Public Use
  Company Number: PHHY2013FR154440

PATIENT
  Age: 41 Year
  Sex: Female

DRUGS (2)
  1. CLOMIPRAMINE SANDOZ [Suspect]
     Dosage: 75 MG
     Route: 048
     Dates: start: 20070510, end: 20070521
  2. CARBAMAZEPINE SANDOZ [Suspect]
     Dosage: 200 MG, Q18H
     Route: 048
     Dates: start: 20070510, end: 20070520

REACTIONS (1)
  - Rash [Recovered/Resolved]
